FAERS Safety Report 17475731 (Version 1)
Quarter: 2020Q1

REPORT INFORMATION
  Report Type: Report from Study
  Country: GB (occurrence: GB)
  Receive Date: 20200228
  Receipt Date: 20200228
  Transmission Date: 20200409
  Serious: Yes (Hospitalization)
  Sender: FDA-Public Use
  Company Number: GB-JNJFOC-20190445696

PATIENT
  Sex: Female

DRUGS (10)
  1. CALCEOS [Concomitant]
     Active Substance: CALCIUM CARBONATE\CHOLECALCIFEROL
  2. ZAPAIN [Concomitant]
     Active Substance: ACETAMINOPHEN\CODEINE PHOSPHATE
  3. EPIPEN [Concomitant]
     Active Substance: EPINEPHRINE
  4. METHOTREXATE. [Concomitant]
     Active Substance: METHOTREXATE
  5. THYROXINE [Concomitant]
     Active Substance: LEVOTHYROXINE
  6. LANSOPRAZOLE. [Concomitant]
     Active Substance: LANSOPRAZOLE
  7. STELARA [Suspect]
     Active Substance: USTEKINUMAB
     Indication: PSORIASIS
     Route: 058
     Dates: start: 20160805
  8. STELARA [Suspect]
     Active Substance: USTEKINUMAB
     Route: 058
     Dates: start: 2016
  9. FORTIGEL [Concomitant]
  10. PARACETAMOL [Concomitant]
     Active Substance: ACETAMINOPHEN

REACTIONS (3)
  - Psoriasis [Not Recovered/Not Resolved]
  - Liver disorder [Unknown]
  - Gastric banding [Unknown]
